FAERS Safety Report 8618534-2 (Version None)
Quarter: 2012Q3

REPORT INFORMATION
  Report Type: 
  Country: None (occurrence: None)
  Receive Date: 20120824
  Receipt Date: 20120813
  Transmission Date: 20120928
  Serious: Yes (Other)
  Sender: FDA-Public Use
  Company Number: US-ACCORD-014484

PATIENT

DRUGS (2)
  1. PACLITAXEL [Suspect]
     Indication: OVARIAN CANCER STAGE I
     Route: 064
  2. CISPLATIN [Suspect]
     Indication: OVARIAN CANCER STAGE I
     Route: 064

REACTIONS (7)
  - TOURETTE'S DISORDER [None]
  - DYSLEXIA [None]
  - HYPERBILIRUBINAEMIA [None]
  - SPEECH DISORDER DEVELOPMENTAL [None]
  - ASPERGER'S DISORDER [None]
  - JAUNDICE [None]
  - FOETAL EXPOSURE DURING PREGNANCY [None]
